FAERS Safety Report 7012330-8 (Version None)
Quarter: 2010Q3

REPORT INFORMATION
  Report Type: 
  Country: None (occurrence: None)
  Receive Date: 20100924
  Receipt Date: 20100917
  Transmission Date: 20110219
  Serious: Yes (Hospitalization)
  Sender: FDA-Public Use
  Company Number: AU-JNJFOC-20100806035

PATIENT
  Sex: Female
  Weight: 35 kg

DRUGS (8)
  1. DURAGESIC-100 [Suspect]
     Indication: OSTEOARTHRITIS
     Route: 062
  2. DURAGESIC-100 [Suspect]
     Route: 062
  3. LYRICA [Concomitant]
     Indication: OSTEOARTHRITIS
     Route: 065
  4. RANITIDINE HCL [Concomitant]
     Indication: GASTROOESOPHAGEAL REFLUX DISEASE
     Route: 065
  5. NEXIUM [Concomitant]
     Indication: GASTROOESOPHAGEAL REFLUX DISEASE
     Route: 065
  6. PARADEX [Concomitant]
     Indication: ARTHRALGIA
     Route: 065
  7. MOTILIUM [Concomitant]
     Indication: GASTROOESOPHAGEAL REFLUX DISEASE
     Route: 065
  8. PROTOS [Concomitant]
     Indication: OSTEOPOROSIS
     Route: 065

REACTIONS (2)
  - HOSPITALISATION [None]
  - SEDATION [None]
